FAERS Safety Report 7766699-7 (Version None)
Quarter: 2011Q3

REPORT INFORMATION
  Report Type: 
  Country: None (occurrence: None)
  Receive Date: 20110919
  Receipt Date: 20110907
  Transmission Date: 20111222
  Serious: Yes (Hospitalization)
  Sender: FDA-Public Use
  Company Number: 2011-00832

PATIENT
  Age: 50 Year
  Sex: Female
  Weight: 113.3993 kg

DRUGS (4)
  1. OMEPRAZOLE [Concomitant]
  2. LISINOPRIL [Suspect]
     Indication: HYPERTENSION
     Dosage: 20 MG (20 MG, 1 IN 1 D), PER ORAL
     Route: 048
     Dates: start: 20100401, end: 20110524
  3. LEVOTHYROXINE [Concomitant]
  4. 30MCG ETHINYLESTRADIOL/1.5MCG NORETHINDRONE ACETATE [Concomitant]

REACTIONS (7)
  - ABDOMINAL PAIN [None]
  - NAUSEA [None]
  - VOMITING [None]
  - ANGIOEDEMA [None]
  - COLD SWEAT [None]
  - GASTROINTESTINAL DISORDER [None]
  - DIARRHOEA [None]
